FAERS Safety Report 9830003 (Version 2)
Quarter: 2014Q1

REPORT INFORMATION
  Report Type: Spontaneous
  Country: US (occurrence: US)
  Receive Date: 20140120
  Receipt Date: 20140120
  Transmission Date: 20141002
  Serious: Yes (Other)
  Sender: FDA-Public Use
  Company Number: PHEH2014US000652

PATIENT
  Age: 69 Year
  Sex: Female

DRUGS (6)
  1. ZORTRESS [Suspect]
     Indication: LIVER TRANSPLANT
     Dosage: 1 MG, BID
     Route: 048
     Dates: start: 2012
  2. ALDACTONE [Concomitant]
     Indication: CARDIAC FAILURE CONGESTIVE
     Dosage: 50 UKN, DAILY
     Route: 048
  3. COREG [Concomitant]
     Indication: CARDIAC FAILURE CONGESTIVE
     Dosage: 6.25 UKN, BID
     Route: 048
  4. CELLCEPT [Concomitant]
     Indication: LIVER TRANSPLANT
     Dosage: 500 UKN, BID
     Route: 048
  5. LASIX [Concomitant]
     Indication: CARDIAC FAILURE CONGESTIVE
     Dosage: 40 UKN, DAILY
     Route: 048
  6. K-DUR [Concomitant]
     Indication: CARDIAC FAILURE CONGESTIVE
     Dosage: 20 UKN, DAILY
     Route: 048

REACTIONS (9)
  - Renal failure chronic [Unknown]
  - Gastric haemorrhage [Unknown]
  - Cardiac failure congestive [Recovering/Resolving]
  - Oxygen saturation decreased [Unknown]
  - Respiratory rate increased [Unknown]
  - Blood pressure decreased [Unknown]
  - Heart rate increased [Unknown]
  - Blood pressure increased [Unknown]
  - Wrong technique in drug usage process [Unknown]
